FAERS Safety Report 13497439 (Version 1)
Quarter: 2017Q2

REPORT INFORMATION
  Report Type: Report from Study
  Country: None (occurrence: NL)
  Receive Date: 20170428
  Receipt Date: 20170428
  Transmission Date: 20170830
  Serious: Yes (Life-Threatening)
  Sender: FDA-Public Use
  Company Number: NL-ABBVIE-17P-114-1922189-00

PATIENT
  Sex: Male
  Weight: 66 kg

DRUGS (1)
  1. LUCRIN DEPOT [Suspect]
     Active Substance: LEUPROLIDE ACETATE
     Indication: PROSTATE CANCER
     Route: 065
     Dates: start: 20131107, end: 20161006

REACTIONS (2)
  - Malaise [Not Recovered/Not Resolved]
  - Palliative care [Not Recovered/Not Resolved]
